FAERS Safety Report 4839724-0 (Version None)
Quarter: 2005Q4

REPORT INFORMATION
  Report Type: 
  Country: None (occurrence: None)
  Receive Date: 20051129
  Receipt Date: 20050713
  Transmission Date: 20060501
  Serious: No
  Sender: FDA-Public Use
  Company Number: US-GLAXOSMITHKLINE-A0566094A

PATIENT
  Age: 19 Year
  Sex: Male

DRUGS (2)
  1. BUPROPION HYDROCHLORIDE [Suspect]
     Indication: DEPRESSION
     Dosage: 225MCG VARIABLE DOSE
     Route: 048
  2. LITHIUM [Concomitant]

REACTIONS (2)
  - ABNORMAL BEHAVIOUR [None]
  - DRUG SCREEN POSITIVE [None]
